FAERS Safety Report 9686776 (Version 1)
Quarter: 2013Q4

REPORT INFORMATION
  Report Type: Spontaneous
  Country: US (occurrence: US)
  Receive Date: 20131113
  Receipt Date: 20131113
  Transmission Date: 20140711
  Serious: No
  Sender: FDA-Public Use
  Company Number: US-BAYER-2013-138579

PATIENT
  Age: 35 Year
  Sex: Male

DRUGS (4)
  1. GADAVIST [Suspect]
     Indication: NUCLEAR MAGNETIC RESONANCE IMAGING SPINAL
     Dosage: 8 ML, ONCE
     Route: 042
     Dates: start: 20131003, end: 20131003
  2. GADAVIST [Suspect]
     Indication: NUCLEAR MAGNETIC RESONANCE IMAGING BRAIN
  3. GADAVIST [Suspect]
     Indication: NECK PAIN
  4. GADAVIST [Suspect]
     Indication: HEADACHE

REACTIONS (1)
  - Nausea [Recovered/Resolved]
